FAERS Safety Report 14618986 (Version 1)
Quarter: 2018Q1

REPORT INFORMATION
  Report Type: Report from Study
  Country: None (occurrence: US)
  Receive Date: 20180309
  Receipt Date: 20180309
  Transmission Date: 20180509
  Serious: Yes (Other)
  Sender: FDA-Public Use
  Company Number: US-ABBVIE-18P-163-2259026-00

PATIENT
  Age: 59 Year
  Sex: Male
  Weight: 68.1 kg

DRUGS (10)
  1. VENCLEXTA [Suspect]
     Active Substance: VENETOCLAX
     Route: 048
     Dates: start: 20170214, end: 20180207
  2. RITUXIMAB. [Suspect]
     Active Substance: RITUXIMAB
     Indication: PRODUCT USED FOR UNKNOWN INDICATION
     Dosage: HAD 8 DOSES
     Route: 065
     Dates: start: 201704, end: 20171028
  3. BACTRIM [Concomitant]
     Active Substance: SULFAMETHOXAZOLE\TRIMETHOPRIM
     Indication: PRODUCT USED FOR UNKNOWN INDICATION
  4. VENCLEXTA [Suspect]
     Active Substance: VENETOCLAX
     Route: 048
     Dates: start: 20161220, end: 20161226
  5. VALTREX [Concomitant]
     Active Substance: VALACYCLOVIR HYDROCHLORIDE
     Indication: ANTIVIRAL PROPHYLAXIS
     Route: 048
  6. LISINOPRIL. [Concomitant]
     Active Substance: LISINOPRIL
     Indication: HYPERTENSION
     Route: 048
     Dates: end: 20161204
  7. VENCLEXTA [Suspect]
     Active Substance: VENETOCLAX
     Indication: CHRONIC LYMPHOCYTIC LEUKAEMIA
     Dosage: X 7 DAYS
     Route: 048
     Dates: start: 20161115, end: 20161121
  8. VENCLEXTA [Suspect]
     Active Substance: VENETOCLAX
     Dosage: X 7 DAYS
     Route: 048
     Dates: start: 20161213, end: 20161219
  9. VENCLEXTA [Suspect]
     Active Substance: VENETOCLAX
     Route: 048
     Dates: start: 20161228, end: 20170117
  10. VENCLEXTA [Suspect]
     Active Substance: VENETOCLAX
     Dosage: X 7 DAYS
     Route: 048
     Dates: start: 20161122, end: 20161128

REACTIONS (9)
  - Amnesia [Not Recovered/Not Resolved]
  - General physical health deterioration [Recovering/Resolving]
  - Weight decreased [Recovered/Resolved]
  - Fatigue [Recovered/Resolved]
  - Cognitive disorder [Recovering/Resolving]
  - Decreased appetite [Recovered/Resolved]
  - Cognitive disorder [Not Recovered/Not Resolved]
  - Mental impairment [Recovering/Resolving]
  - Myalgia [Recovering/Resolving]

NARRATIVE: CASE EVENT DATE: 201611
